FAERS Safety Report 24162018 (Version 2)
Quarter: 2024Q3

REPORT INFORMATION
  Report Type: Report from Study
  Country: UY (occurrence: UY)
  Receive Date: 20240801
  Receipt Date: 20240831
  Transmission Date: 20241017
  Serious: Yes (Life-Threatening, Hospitalization, Other)
  Sender: TAKEDA
  Company Number: UY-SHIRE-UY202014231

PATIENT
  Age: 47 Year
  Sex: Male
  Weight: 80 kg

DRUGS (30)
  1. AGALSIDASE ALFA [Suspect]
     Active Substance: AGALSIDASE ALFA
     Indication: Fabry^s disease
     Dosage: UNK UNK, 2/MONTH
     Route: 042
     Dates: start: 2016
  2. AGALSIDASE ALFA [Suspect]
     Active Substance: AGALSIDASE ALFA
     Dosage: UNK
     Route: 042
  3. AGALSIDASE ALFA [Suspect]
     Active Substance: AGALSIDASE ALFA
     Dosage: 4 DOSAGE FORM, Q2WEEKS
     Route: 042
     Dates: start: 201708
  4. AGALSIDASE ALFA [Suspect]
     Active Substance: AGALSIDASE ALFA
     Dosage: 5 DOSAGE FORM, Q2WEEKS
     Route: 042
  5. AGALSIDASE ALFA [Suspect]
     Active Substance: AGALSIDASE ALFA
     Dosage: 16 MILLIGRAM, Q2WEEKS
     Route: 042
  6. AGALSIDASE ALFA [Suspect]
     Active Substance: AGALSIDASE ALFA
     Dosage: UNK
     Route: 042
  7. AGALSIDASE ALFA [Suspect]
     Active Substance: AGALSIDASE ALFA
     Dosage: 5 DOSAGE FORM, Q2WEEKS
     Route: 042
  8. AGALSIDASE ALFA [Suspect]
     Active Substance: AGALSIDASE ALFA
     Dosage: 5 DOSAGE FORM, Q2WEEKS
     Route: 042
  9. AGALSIDASE ALFA [Suspect]
     Active Substance: AGALSIDASE ALFA
     Dosage: UNK UNK, Q2WEEKS
     Route: 042
  10. AGALSIDASE ALFA [Suspect]
     Active Substance: AGALSIDASE ALFA
     Dosage: 5 DOSAGE FORM, Q2WEEKS
     Route: 042
  11. AGALSIDASE ALFA [Suspect]
     Active Substance: AGALSIDASE ALFA
     Dosage: UNK UNK, Q2WEEKS
     Route: 042
  12. AGALSIDASE ALFA [Suspect]
     Active Substance: AGALSIDASE ALFA
     Dosage: UNK
     Route: 042
  13. AGALSIDASE ALFA [Suspect]
     Active Substance: AGALSIDASE ALFA
     Dosage: 3.5 MILLIGRAM, 2/WEEK
     Route: 042
  14. AGALSIDASE ALFA [Suspect]
     Active Substance: AGALSIDASE ALFA
     Dosage: UNK
     Route: 042
  15. AGALSIDASE ALFA [Suspect]
     Active Substance: AGALSIDASE ALFA
     Dosage: UNK
     Route: 042
  16. AGALSIDASE ALFA [Suspect]
     Active Substance: AGALSIDASE ALFA
     Dosage: UNK
     Route: 065
     Dates: start: 20200331
  17. AGALSIDASE ALFA [Suspect]
     Active Substance: AGALSIDASE ALFA
     Dosage: UNK UNK, Q2WEEKS
     Route: 042
  18. AGALSIDASE ALFA [Suspect]
     Active Substance: AGALSIDASE ALFA
     Dosage: UNK UNK, Q2WEEKS
     Route: 042
  19. AGALSIDASE ALFA [Suspect]
     Active Substance: AGALSIDASE ALFA
     Dosage: 4 DOSAGE FORM, Q2WEEKS
     Route: 042
  20. AGALSIDASE ALFA [Suspect]
     Active Substance: AGALSIDASE ALFA
     Dosage: UNK UNK, 2/MONTH
     Route: 065
  21. VASTAREL [Concomitant]
     Active Substance: TRIMETAZIDINE DIHYDROCHLORIDE
     Dosage: UNK
     Route: 065
  22. DILTIAZEM [Concomitant]
     Active Substance: DILTIAZEM
     Dosage: UNK
     Route: 065
  23. ALLOPURINOL [Concomitant]
     Active Substance: ALLOPURINOL
     Dosage: UNK
     Route: 065
  24. ASPIRIN [Concomitant]
     Active Substance: ASPIRIN
     Dosage: UNK
     Route: 065
  25. ROSUVASTATIN [Concomitant]
     Active Substance: ROSUVASTATIN\ROSUVASTATIN CALCIUM
     Dosage: UNK
     Route: 048
  26. ERYTHROPOIETIN [Concomitant]
     Active Substance: ERYTHROPOIETIN
     Dosage: UNK
     Route: 065
  27. SILAN [Concomitant]
     Dosage: UNK
     Route: 065
  28. RANITIDINE [Concomitant]
     Active Substance: RANITIDINE
     Dosage: UNK
     Route: 065
  29. FACTOR AG [Concomitant]
     Dosage: UNK
     Route: 065
  30. TRIMEBUTINE MALEATE [Concomitant]
     Active Substance: TRIMEBUTINE MALEATE
     Dosage: UNK
     Route: 065

REACTIONS (63)
  - Cardiac arrest [Unknown]
  - Paraparesis [Unknown]
  - Cerebrovascular accident [Unknown]
  - Syncope [Unknown]
  - Neuropathy peripheral [Unknown]
  - Cardiomyopathy [Unknown]
  - Limb injury [Unknown]
  - Depression [Unknown]
  - Vascular encephalopathy [Unknown]
  - Polyneuropathy [Unknown]
  - Chronic kidney disease [Unknown]
  - Hypotension [Recovering/Resolving]
  - Abdominal pain [Unknown]
  - Myocardial ischaemia [Unknown]
  - Infusion related reaction [Unknown]
  - Transient ischaemic attack [Recovered/Resolved]
  - COVID-19 [Recovered/Resolved]
  - Acute myocardial infarction [Recovering/Resolving]
  - Ophthalmic migraine [Recovered/Resolved]
  - Peritonitis [Recovering/Resolving]
  - Visual impairment [Unknown]
  - Umbilical hernia [Recovered/Resolved]
  - Fabry^s disease [Not Recovered/Not Resolved]
  - Dyspepsia [Recovering/Resolving]
  - Chest pain [Recovered/Resolved]
  - Vasospasm [Recovering/Resolving]
  - Appetite disorder [Recovered/Resolved]
  - Angiokeratoma [Unknown]
  - Gait disturbance [Unknown]
  - Hernia [Unknown]
  - Weight decreased [Unknown]
  - Muscle spasms [Recovering/Resolving]
  - Euphoric mood [Unknown]
  - Fear [Unknown]
  - Nervousness [Unknown]
  - Gastrointestinal disorder [Unknown]
  - Eye swelling [Unknown]
  - Product use issue [Unknown]
  - Incorrect dose administered [Unknown]
  - Inappropriate schedule of product administration [Unknown]
  - Coordination abnormal [Unknown]
  - Diffusion-weighted brain MRI abnormal [Unknown]
  - Central nervous system lesion [Unknown]
  - Microangiopathy [Unknown]
  - Hyporeflexia [Unknown]
  - Hyperreflexia [Unknown]
  - Muscular weakness [Unknown]
  - Polyuria [Unknown]
  - Raynaud^s phenomenon [Unknown]
  - Cerebrovascular disorder [Unknown]
  - Left ventricular hypertrophy [Unknown]
  - Fatigue [Recovering/Resolving]
  - Myalgia [Recovering/Resolving]
  - Tremor [Unknown]
  - Headache [Unknown]
  - Paraesthesia [Unknown]
  - Hypoaesthesia [Unknown]
  - Bronchospasm [Recovered/Resolved]
  - Diarrhoea [Recovered/Resolved]
  - Nausea [Not Recovered/Not Resolved]
  - Pain in extremity [Recovered/Resolved]
  - Pyrexia [Recovered/Resolved]
  - Pain [Recovered/Resolved]

NARRATIVE: CASE EVENT DATE: 20200420
